FAERS Safety Report 4417023-9 (Version None)
Quarter: 2004Q2

REPORT INFORMATION
  Report Type: 
  Country: None (occurrence: None)
  Receive Date: 20040629
  Receipt Date: 20040301
  Transmission Date: 20050107
  Serious: No
  Sender: FDA-Public Use
  Company Number: US068155

PATIENT
  Age: 78 Year
  Sex: Female

DRUGS (9)
  1. ARANESP [Suspect]
     Indication: RENAL FAILURE CHRONIC
     Dosage: 100 MCG, 1 IN 2 WEEKS, SC
     Route: 058
     Dates: start: 20040204
  2. CYANOCOBALAMIN [Concomitant]
  3. LORAZEPAM [Concomitant]
  4. FOLIC ACID [Concomitant]
  5. IRON [Concomitant]
  6. LEVOTHYROXINE SODIUM [Concomitant]
  7. FLUVASTATIN SODIUM [Concomitant]
  8. FUROSEMIDE [Concomitant]
  9. POTASSIUM CHLORIDE [Concomitant]

REACTIONS (3)
  - ALOPECIA [None]
  - PARAESTHESIA [None]
  - PRURITUS [None]
